FAERS Safety Report 7552823-8 (Version None)
Quarter: 2011Q2

REPORT INFORMATION
  Report Type: 
  Country: None (occurrence: None)
  Receive Date: 20110616
  Receipt Date: 20110606
  Transmission Date: 20111010
  Serious: Yes (Hospitalization, Other)
  Sender: FDA-Public Use
  Company Number: BE-ABBOTT-11P-013-0730446-02

PATIENT
  Sex: Male

DRUGS (10)
  1. FURACINE [Concomitant]
     Indication: NASAL DISORDER
  2. OMNIBIONTA [Concomitant]
     Indication: VITAMIN SUPPLEMENTATION
     Dates: start: 20031001
  3. HUMIRA [Suspect]
     Indication: CROHN'S DISEASE
     Route: 058
  4. FURACINE [Concomitant]
     Indication: MUCOSAL INFLAMMATION
     Route: 061
     Dates: start: 20091201
  5. FERROUS GLUCONATE [Concomitant]
     Indication: IRON DEFICIENCY
     Dates: start: 20020812
  6. AZATHIOPRINE [Concomitant]
     Indication: CROHN'S DISEASE
  7. MAGNESIUM CITRATE [Concomitant]
     Indication: MINERAL SUPPLEMENTATION
     Dates: start: 20021104
  8. PENTASA [Concomitant]
     Indication: CROHN'S DISEASE
  9. LEKOVIT CA [Concomitant]
     Indication: VITAMIN SUPPLEMENTATION
     Dates: start: 20080101
  10. ALENDRONATE SODIUM [Concomitant]
     Indication: OSTEOPENIA
     Dates: start: 20090520

REACTIONS (2)
  - GROIN ABSCESS [None]
  - LYMPHADENOPATHY [None]
